FAERS Safety Report 16104536 (Version 1)
Quarter: 2019Q1

REPORT INFORMATION
  Report Type: Spontaneous
  Country: US (occurrence: US)
  Receive Date: 20190219
  Receipt Date: 20190219
  Transmission Date: 20190418
  Serious: No
  Sender: FDA-Public Use
  Company Number: None

PATIENT
  Sex: Female

DRUGS (1)
  1. NINLARO [Suspect]
     Active Substance: IXAZOMIB CITRATE
     Indication: PLASMA CELL MYELOMA
     Dosage: 1 CAPSULE BY MOUTH ON DAYS 1, 8, 15 OF A 28 DAY CYCLE
     Route: 048
     Dates: start: 2018

REACTIONS (2)
  - Seizure [None]
  - Therapy cessation [None]
